FAERS Safety Report 8888663 (Version 1)
Quarter: 2012Q4

REPORT INFORMATION
  Report Type: 
  Country: US (occurrence: US)
  Receive Date: 20121106
  Receipt Date: 20121106
  Transmission Date: 20130627
  Serious: Yes (Hospitalization, Other)
  Sender: FDA-Public Use
  Company Number: US-UCBSA-069589

PATIENT
  Age: 55 Year
  Sex: Male
  Weight: 103.8 kg

DRUGS (8)
  1. CIMZIA [Suspect]
     Indication: CROHN^S DISEASE
     Dosage: 3 DOSES
     Route: 058
     Dates: start: 20121005, end: 20121019
  2. HYDROCHLOROTHIAZIDE [Concomitant]
     Indication: HYPERTENSION
     Route: 048
     Dates: start: 1990
  3. VENLAFAXINE [Concomitant]
     Indication: DEPRESSION
     Route: 048
     Dates: start: 2004
  4. ASACOL [Concomitant]
     Indication: CROHN^S DISEASE
     Dosage: 2 TAB THRICE DAILY
     Route: 048
     Dates: start: 201204
  5. PREDNISONE [Concomitant]
     Indication: CROHN^S DISEASE
     Route: 048
     Dates: start: 1989
  6. BENICAR [Concomitant]
     Indication: HYPERTENSION
     Route: 048
     Dates: start: 1990
  7. GABAPENTIN [Concomitant]
     Route: 048
  8. PROPAFENONE [Concomitant]
     Indication: ATRIAL FIBRILLATION
     Route: 048
     Dates: start: 2004

REACTIONS (6)
  - Atrial fibrillation [Recovered/Resolved]
  - Blood pressure increased [Recovered/Resolved]
  - Loss of consciousness [Recovered/Resolved]
  - Diplopia [Recovered/Resolved]
  - Tunnel vision [Recovered/Resolved]
  - Peripheral vascular disorder [Recovered/Resolved]
